FAERS Safety Report 9062915 (Version 1)
Quarter: 2013Q1

REPORT INFORMATION
  Report Type: Spontaneous
  Country: JP (occurrence: JP)
  Receive Date: 20130213
  Receipt Date: 20130213
  Transmission Date: 20140127
  Serious: Yes (Other)
  Sender: FDA-Public Use
  Company Number: 2013SP002178

PATIENT
  Age: 65 Year
  Sex: Female

DRUGS (4)
  1. FLUOROURACIL [Suspect]
     Indication: RECTAL CANCER
     Route: 040
  2. FLUOROURACIL [Suspect]
     Indication: RECTAL CANCER
     Route: 041
  3. OXALIPLATIN [Suspect]
     Indication: RECTAL CANCER
     Route: 042
  4. CALCIUM FOLINATE [Suspect]
     Indication: RECTAL CANCER
     Route: 042

REACTIONS (11)
  - Inappropriate antidiuretic hormone secretion [Recovering/Resolving]
  - Respiratory arrest [Recovering/Resolving]
  - Depressed level of consciousness [Recovering/Resolving]
  - Bradycardia [Recovering/Resolving]
  - Dyslalia [Recovering/Resolving]
  - Hyponatraemia [Recovering/Resolving]
  - Nausea [Recovering/Resolving]
  - Vomiting [Recovering/Resolving]
  - Hypoaesthesia [Recovering/Resolving]
  - Malaise [Recovering/Resolving]
  - Dyspnoea [Recovering/Resolving]
